FAERS Safety Report 21774734 (Version 1)
Quarter: 2022Q4

REPORT INFORMATION
  Report Type: Spontaneous
  Country: DE (occurrence: DE)
  Receive Date: 20221224
  Receipt Date: 20221224
  Transmission Date: 20230112
  Serious: Yes (Death)
  Sender: FDA-Public Use
  Company Number: DE-DCGMA-22199854

PATIENT
  Age: 75 Year
  Sex: Female

DRUGS (1)
  1. METFORMIN [Suspect]
     Active Substance: METFORMIN HYDROCHLORIDE
     Indication: Type 2 diabetes mellitus
     Dosage: 850 DOSAGE FORM
     Route: 048

REACTIONS (2)
  - Lactic acidosis [Fatal]
  - Overdose [Fatal]

NARRATIVE: CASE EVENT DATE: 20221111
